FAERS Safety Report 9383204 (Version 1)
Quarter: 2013Q3

REPORT INFORMATION
  Report Type: Spontaneous
  Country: CA (occurrence: CA)
  Receive Date: 20130704
  Receipt Date: 20130704
  Transmission Date: 20140515
  Serious: Yes (Other)
  Sender: FDA-Public Use
  Company Number: CA-AMGEN-CANSP2013045844

PATIENT
  Age: 57 Year
  Sex: Female

DRUGS (1)
  1. PROLIA [Suspect]
     Indication: OSTEOPOROSIS POSTMENOPAUSAL
     Dosage: UNK
     Dates: start: 20110513

REACTIONS (5)
  - Osteonecrosis [Unknown]
  - Jaw disorder [Unknown]
  - Gingival disorder [Unknown]
  - Stomatitis [Unknown]
  - Impaired healing [Not Recovered/Not Resolved]
